FAERS Safety Report 22020110 (Version 1)
Quarter: 2023Q1

REPORT INFORMATION
  Report Type: Spontaneous
  Country: JP (occurrence: JP)
  Receive Date: 20230222
  Receipt Date: 20230222
  Transmission Date: 20230417
  Serious: Yes (Other)
  Sender: FDA-Public Use
  Company Number: JP-PFIZER INC-202300072228

PATIENT
  Age: 61 Year
  Sex: Male

DRUGS (8)
  1. METRONIDAZOLE [Suspect]
     Active Substance: METRONIDAZOLE
     Dosage: 1500 MG
  2. TRAMADOL [Concomitant]
     Active Substance: TRAMADOL
     Dosage: 75 MG
     Route: 048
  3. AZOSEMIDE [Concomitant]
     Active Substance: AZOSEMIDE
     Dosage: 60 MG
  4. ZINC ACETATE [Concomitant]
     Active Substance: ZINC ACETATE
     Dosage: 50 MG
  5. LANSOPRAZOLE [Concomitant]
     Active Substance: LANSOPRAZOLE
     Dosage: 15 MG
  6. ACETAMINOPHEN [Concomitant]
     Active Substance: ACETAMINOPHEN
     Dosage: 1.5 G
  7. MIROGABALIN [Concomitant]
     Active Substance: MIROGABALIN
     Dosage: 10 MG
  8. CEFEPIME [Concomitant]
     Active Substance: CEFEPIME HYDROCHLORIDE
     Dosage: 2 G

REACTIONS (1)
  - Altered state of consciousness [Recovered/Resolved]
